FAERS Safety Report 6178525-0 (Version None)
Quarter: 2009Q2

REPORT INFORMATION
  Report Type: 
  Country: None (occurrence: None)
  Receive Date: 20090430
  Receipt Date: 20090407
  Transmission Date: 20091009
  Serious: Yes (Other)
  Sender: FDA-Public Use
  Company Number: 2009AP001656

PATIENT
  Age: 55 Year
  Sex: Female

DRUGS (7)
  1. CLARITHROMYCIN [Suspect]
     Indication: NOCARDIOSIS
     Dosage: 250 MG; BID PO
     Route: 048
     Dates: start: 20081001, end: 20090401
  2. TIOTROPIUM (TIOTROPIUM) [Concomitant]
  3. FLUTICASONE PROPIONATE [Concomitant]
  4. SALMETEROL (SALMETEROL) [Concomitant]
  5. PHENYTOIN [Concomitant]
  6. SALBUTAMOL (SALBUTAMOL) [Concomitant]
  7. LEVOTHYROXINE SODIUM [Concomitant]

REACTIONS (3)
  - DIZZINESS [None]
  - FEELING ABNORMAL [None]
  - PRODUCT SUBSTITUTION ISSUE [None]
